FAERS Safety Report 14717986 (Version 3)
Quarter: 2020Q1

REPORT INFORMATION
  Report Type: Spontaneous
  Country: US (occurrence: US)
  Receive Date: 20180404
  Receipt Date: 20200117
  Transmission Date: 20200409
  Serious: No
  Sender: FDA-Public Use
  Company Number: US-SA-2018SA059830

PATIENT
  Age: 22 Year
  Sex: Female
  Weight: 62.5 kg

DRUGS (10)
  1. DUPIXENT [Suspect]
     Active Substance: DUPILUMAB
     Indication: DERMATITIS ALLERGIC
     Dosage: 600 MG,1X
     Route: 058
     Dates: start: 20180104, end: 20180104
  2. PREDNISONE. [Concomitant]
     Active Substance: PREDNISONE
     Dosage: 10 MG,QD
     Route: 065
     Dates: start: 20180119, end: 20180126
  3. PROTOPIC [Concomitant]
     Active Substance: TACROLIMUS
  4. PREDNISONE. [Concomitant]
     Active Substance: PREDNISONE
     Indication: ECZEMA
     Dosage: 20 MG,QD
     Route: 065
     Dates: start: 20180112, end: 20180118
  5. DUPIXENT [Suspect]
     Active Substance: DUPILUMAB
     Dosage: 300 MG,QOW
     Route: 058
     Dates: start: 20180111
  6. HYDROXYZINE [Concomitant]
     Active Substance: HYDROXYZINE HYDROCHLORIDE
     Indication: ECZEMA
     Dosage: 50 MG,HS
     Route: 048
     Dates: start: 20171227
  7. FLUOCINONIDE. [Concomitant]
     Active Substance: FLUOCINONIDE
  8. TRIAMCINOLONE [Concomitant]
     Active Substance: TRIAMCINOLONE
     Indication: ECZEMA
     Dosage: UNK UNK,QD
     Route: 065
     Dates: start: 20171110
  9. DESONIDE. [Concomitant]
     Active Substance: DESONIDE
  10. TACROLIMUS. [Concomitant]
     Active Substance: TACROLIMUS

REACTIONS (9)
  - Eye pruritus [Not Recovered/Not Resolved]
  - Eczema [Recovered/Resolved]
  - Eczema [Not Recovered/Not Resolved]
  - Rash [Not Recovered/Not Resolved]
  - Sleep disorder [Not Recovered/Not Resolved]
  - Discomfort [Unknown]
  - Eye disorder [Recovered/Resolved]
  - Erythema [Not Recovered/Not Resolved]
  - Pain [Not Recovered/Not Resolved]

NARRATIVE: CASE EVENT DATE: 20180218
